FAERS Safety Report 16682167 (Version 6)
Quarter: 2020Q1

REPORT INFORMATION
  Report Type: Spontaneous
  Country: US (occurrence: US)
  Receive Date: 20190808
  Receipt Date: 20200214
  Transmission Date: 20200409
  Serious: Yes (Other)
  Sender: FDA-Public Use
  Company Number: US-PFIZER INC-2019337207

PATIENT
  Age: 69 Year
  Sex: Female

DRUGS (1)
  1. XELJANZ XR [Suspect]
     Active Substance: TOFACITINIB CITRATE
     Dosage: 11 MG, UNK
     Route: 048
     Dates: end: 2019

REACTIONS (3)
  - Benign ovarian tumour [Unknown]
  - Chronic obstructive pulmonary disease [Unknown]
  - Wrist fracture [Unknown]

NARRATIVE: CASE EVENT DATE: 2019
